FAERS Safety Report 5342766-2 (Version None)
Quarter: 2007Q2

REPORT INFORMATION
  Report Type: 
  Country: None (occurrence: None)
  Receive Date: 20070601
  Receipt Date: 20070522
  Transmission Date: 20071010
  Serious: Yes (Death, Other)
  Sender: FDA-Public Use
  Company Number: CA-PFIZER INC-2007042072

PATIENT
  Sex: Male

DRUGS (7)
  1. LYRICA [Suspect]
     Indication: HEADACHE
     Route: 048
  2. PROPRANOLOL [Concomitant]
  3. PREDNISONE TAB [Concomitant]
  4. ANTIBIOTICS [Concomitant]
  5. CODEINE SUL TAB [Concomitant]
  6. TYLENOL W/ CODEINE NO. 3 [Concomitant]
  7. LORAZEPAM [Concomitant]

REACTIONS (2)
  - BLOOD PRESSURE DECREASED [None]
  - MYOCARDIAL INFARCTION [None]
